FAERS Safety Report 12662654 (Version 2)
Quarter: 2016Q3

REPORT INFORMATION
  Report Type: Spontaneous
  Country: AT (occurrence: AT)
  Receive Date: 20160818
  Receipt Date: 20160822
  Transmission Date: 20161109
  Serious: Yes (Death)
  Sender: FDA-Public Use
  Company Number: AT-ABBVIE-16K-009-1703677-00

PATIENT
  Sex: Male

DRUGS (1)
  1. DUODOPA [Suspect]
     Active Substance: CARBIDOPA\LEVODOPA
     Indication: PARKINSON^S DISEASE
     Dosage: 16TH THERAPY: MD-11ML, CR-5.1ML/H, ED-3ML
     Route: 050
     Dates: start: 20100218

REACTIONS (2)
  - Respiratory failure [Fatal]
  - Pneumonia [Fatal]
